FAERS Safety Report 9303134 (Version 2)
Quarter: 2013Q2

REPORT INFORMATION
  Report Type: Spontaneous
  Country: VE (occurrence: VE)
  Receive Date: 20130522
  Receipt Date: 20130604
  Transmission Date: 20140414
  Serious: Yes (Other)
  Sender: FDA-Public Use
  Company Number: VE-AMGEN-VENSP2013035692

PATIENT
  Age: 47 Year
  Sex: Female

DRUGS (4)
  1. ENBREL [Suspect]
     Indication: RHEUMATOID ARTHRITIS
     Dosage: 25 MG, WEEKLY
     Route: 058
     Dates: start: 20130415
  2. ATACAND PLUS [Concomitant]
     Indication: HYPERTENSION
     Dosage: 16/12.5 MG, 1 DF, 1X/DAY
     Route: 048
     Dates: start: 2011
  3. CONCOR [Concomitant]
     Indication: TACHYCARDIA
     Dosage: 2.5 MG, 1X/DAY
     Route: 048
     Dates: start: 201211
  4. EUTHYROX [Concomitant]
     Indication: HYPOTHYROIDISM
     Dosage: 100 MG/G, 1X/DAY
     Route: 048
     Dates: start: 1993

REACTIONS (4)
  - Wrong technique in drug usage process [Recovered/Resolved]
  - Abscess oral [Recovered/Resolved]
  - Groin abscess [Recovered/Resolved]
  - Injection site erythema [Recovered/Resolved]
